FAERS Safety Report 15606164 (Version 2)
Quarter: 2019Q2

REPORT INFORMATION
  Report Type: Spontaneous
  Country: SE (occurrence: SE)
  Receive Date: 20181112
  Receipt Date: 20190405
  Transmission Date: 20190711
  Serious: Yes (Hospitalization)
  Sender: FDA-Public Use
  Company Number: SE-ACCORD-092586

PATIENT
  Age: 72 Year
  Sex: Female

DRUGS (15)
  1. METHOTREXATE. [Suspect]
     Active Substance: METHOTREXATE
     Indication: PSORIATIC ARTHROPATHY
     Dosage: TABLETTER
     Dates: start: 20050101, end: 20180516
  2. SIMVASTATIN. [Concomitant]
     Active Substance: SIMVASTATIN
  3. SAROTEN [Concomitant]
     Active Substance: AMITRIPTYLINE
     Dosage: 10 MG
  4. DESONIX [Concomitant]
  5. MOVICOL [Concomitant]
     Active Substance: POLYETHYLENE GLYCOL 3350\POTASSIUM CHLORIDE\SODIUM BICARBONATE\SODIUM CHLORIDE
  6. ALVEDON [Concomitant]
     Active Substance: ACETAMINOPHEN
     Dosage: 500 MG
  7. COSENTYX [Suspect]
     Active Substance: SECUKINUMAB
     Indication: PSORIATIC ARTHROPATHY
     Dates: start: 20171130, end: 20180502
  8. LOSARTAN. [Concomitant]
     Active Substance: LOSARTAN
  9. CANODERM [Concomitant]
     Active Substance: UREA
  10. AZOPT [Concomitant]
     Active Substance: BRINZOLAMIDE
  11. FOLIC ACID. [Concomitant]
     Active Substance: FOLIC ACID
  12. LATANOPROST. [Concomitant]
     Active Substance: LATANOPROST
  13. SELOKENZOC [Concomitant]
     Active Substance: METOPROLOL SUCCINATE
     Dosage: 50 MG PROLONGED-RELEASE TABLET
  14. ELIQUIS [Concomitant]
     Active Substance: APIXABAN
  15. DESONIX [Concomitant]

REACTIONS (1)
  - Eosinophilic pneumonia [Recovered/Resolved with Sequelae]

NARRATIVE: CASE EVENT DATE: 20180501
